FAERS Safety Report 23150497 (Version 3)
Quarter: 2023Q4

REPORT INFORMATION
  Report Type: Report from Study
  Country: US (occurrence: US)
  Receive Date: 20231106
  Receipt Date: 20231222
  Transmission Date: 20240110
  Serious: No
  Sender: FDA-Public Use
  Company Number: US-002147023-NVSC2023US236864

PATIENT
  Sex: Female

DRUGS (1)
  1. PIQRAY [Suspect]
     Active Substance: ALPELISIB
     Indication: Product used for unknown indication
     Dosage: UNK UNK, QD (150)
     Route: 048
     Dates: start: 202310

REACTIONS (3)
  - Hyperglycaemia [Unknown]
  - Hypertension [Unknown]
  - Blood glucose decreased [Unknown]
